FAERS Safety Report 6925913-8 (Version None)
Quarter: 2010Q3

REPORT INFORMATION
  Report Type: 
  Country: None (occurrence: None)
  Receive Date: 20100816
  Receipt Date: 20100719
  Transmission Date: 20110219
  Serious: Yes (Death, Hospitalization, Other)
  Sender: FDA-Public Use
  Company Number: PHEH2006US05879

PATIENT
  Sex: Male
  Weight: 80.726 kg

DRUGS (25)
  1. ZOMETA [Suspect]
     Dosage: 4 MG, QMO
  2. AREDIA [Suspect]
     Indication: METASTASES TO BONE
  3. AREDIA [Suspect]
     Indication: MULTIPLE MYELOMA
  4. CHEMOTHERAPEUTICS NOS [Concomitant]
  5. ACETAMINOPHEN [Concomitant]
  6. ASPIRIN [Concomitant]
  7. CHLORHEXIDINE GLUCONATE [Concomitant]
  8. NYSTATIN [Concomitant]
  9. OXYCODONE [Concomitant]
  10. PROTONIX [Concomitant]
  11. AUGMENTIN '125' [Concomitant]
  12. METRONIDAZOLE [Concomitant]
  13. TEMAZEPAM [Concomitant]
  14. METOPROLOL TARTRATE [Concomitant]
  15. COMPAZINE [Concomitant]
  16. REMERON [Concomitant]
  17. ATIVAN [Concomitant]
  18. MILK OF MAGNESIA TAB [Concomitant]
  19. BISACODYL [Concomitant]
  20. AMBIEN [Concomitant]
  21. VELCADE [Concomitant]
  22. DOXIL [Concomitant]
  23. REVLIMID [Concomitant]
  24. DECADRON [Concomitant]
  25. THALIDOMIDE [Concomitant]

REACTIONS (44)
  - ACUTE MYOCARDIAL INFARCTION [None]
  - ANAEMIA [None]
  - ANXIETY [None]
  - ASTHENIA [None]
  - ATELECTASIS [None]
  - BACK PAIN [None]
  - BONE DISORDER [None]
  - COUGH [None]
  - DEATH [None]
  - DEBRIDEMENT [None]
  - DECREASED INTEREST [None]
  - DENTAL OPERATION [None]
  - DENTOFACIAL ANOMALY [None]
  - DYSPEPSIA [None]
  - DYSPHAGIA [None]
  - DYSPNOEA [None]
  - EJECTION FRACTION DECREASED [None]
  - EMOTIONAL DISTRESS [None]
  - ENDODONTIC PROCEDURE [None]
  - GASTROOESOPHAGEAL REFLUX DISEASE [None]
  - GENERAL PHYSICAL HEALTH DETERIORATION [None]
  - HYPERGLYCAEMIA [None]
  - HYPERHIDROSIS [None]
  - HYPERTENSION [None]
  - INFECTION [None]
  - LIFE EXPECTANCY SHORTENED [None]
  - MECHANICAL VENTILATION [None]
  - MONOPLEGIA [None]
  - MYELOPATHY [None]
  - OESOPHAGEAL STENOSIS [None]
  - OSTEOMYELITIS [None]
  - OSTEONECROSIS OF JAW [None]
  - PAIN [None]
  - PANCYTOPENIA [None]
  - PATHOLOGICAL FRACTURE [None]
  - PYREXIA [None]
  - RESPIRATORY FAILURE [None]
  - SEQUESTRECTOMY [None]
  - SPINAL CORD COMPRESSION [None]
  - TACHYCARDIA [None]
  - THROMBOCYTOPENIA [None]
  - TOOTH EXTRACTION [None]
  - TOOTH FRACTURE [None]
  - VOMITING [None]
